FAERS Safety Report 7629388-5 (Version None)
Quarter: 2011Q3

REPORT INFORMATION
  Report Type: 
  Country: None (occurrence: None)
  Receive Date: 20110722
  Receipt Date: 20110721
  Transmission Date: 20111222
  Serious: Yes (Other)
  Sender: FDA-Public Use
  Company Number: SG-SANOFI-AVENTIS-2011SA046291

PATIENT
  Age: 80 Year
  Sex: Female

DRUGS (1)
  1. PLAVIX [Suspect]
     Route: 065

REACTIONS (2)
  - VOMITING [None]
  - DIARRHOEA [None]
